FAERS Safety Report 9298435 (Version 1)
Quarter: 2013Q2

REPORT INFORMATION
  Report Type: Spontaneous
  Country: US (occurrence: US)
  Receive Date: 20130520
  Receipt Date: 20130520
  Transmission Date: 20140414
  Serious: Yes (Life-Threatening, Other)
  Sender: FDA-Public Use
  Company Number: US-ASTRAZENECA-2013SE28155

PATIENT
  Age: 86 Year
  Sex: Male

DRUGS (5)
  1. ESOMEPRAZOLE [Suspect]
     Route: 048
  2. PREDNISONE [Concomitant]
  3. CARVEDIOL [Concomitant]
  4. AMLODIPINE [Concomitant]
  5. PARACALCITRIOL [Concomitant]

REACTIONS (3)
  - Hypomagnesaemia [Recovered/Resolved]
  - Calcium metabolism disorder [Recovered/Resolved]
  - Tetany [Recovered/Resolved]
